FAERS Safety Report 4859446-X (Version None)
Quarter: 2005Q4

REPORT INFORMATION
  Report Type: 
  Country: None (occurrence: None)
  Receive Date: 20051215
  Receipt Date: 20051124
  Transmission Date: 20060501
  Serious: Yes (Hospitalization)
  Sender: FDA-Public Use
  Company Number: DEU-2005-0001814

PATIENT
  Age: 80 Year
  Sex: Female
  Weight: 71 kg

DRUGS (7)
  1. PALLADONE [Suspect]
     Indication: CANCER PAIN
     Dosage: 4 MG, TID; ORAL, 8 MG, TID, ORAL, 8 MG, BID, ORAL
     Route: 048
     Dates: start: 20051016, end: 20051017
  2. PALLADONE [Suspect]
     Indication: CANCER PAIN
     Dosage: 4 MG, TID; ORAL, 8 MG, TID, ORAL, 8 MG, BID, ORAL
     Route: 048
     Dates: start: 20051018, end: 20051109
  3. PALLADONE [Suspect]
     Indication: CANCER PAIN
     Dosage: 4 MG, TID; ORAL, 8 MG, TID, ORAL, 8 MG, BID, ORAL
     Route: 048
     Dates: start: 20051110, end: 20051122
  4. FENTANYL [Concomitant]
  5. METAMIZOLE [Concomitant]
  6. METOCLOPRAMIDE [Concomitant]
  7. MOVICOL (SODIUM BICARBONATE, POTASSIUM CHLORIDE, SODIUM CHLORIDE, MACR [Concomitant]

REACTIONS (2)
  - PATHOLOGICAL FRACTURE [None]
  - UPPER LIMB FRACTURE [None]
